FAERS Safety Report 7583105-6 (Version None)
Quarter: 2011Q2

REPORT INFORMATION
  Report Type: 
  Country: None (occurrence: None)
  Receive Date: 20110630
  Receipt Date: 20101108
  Transmission Date: 20111010
  Serious: No
  Sender: FDA-Public Use
  Company Number: US-ASTRAZENECA-2010SE51992

PATIENT
  Sex: Male
  Weight: 80.7 kg

DRUGS (1)
  1. ZOLADEX [Suspect]
     Indication: PROSTATE CANCER
     Dosage: 10.8 MG EVERY THREE MONTHS
     Route: 058
     Dates: start: 20060101

REACTIONS (5)
  - FLUID RETENTION [None]
  - PROSTATIC SPECIFIC ANTIGEN INCREASED [None]
  - BLOOD CHOLESTEROL INCREASED [None]
  - BODY HEIGHT DECREASED [None]
  - BACK PAIN [None]
